FAERS Safety Report 6258021-2 (Version None)
Quarter: 2009Q3

REPORT INFORMATION
  Report Type: 
  Country: None (occurrence: None)
  Receive Date: 20090707
  Receipt Date: 20090624
  Transmission Date: 20100115
  Serious: Yes (Hospitalization)
  Sender: FDA-Public Use
  Company Number: FR-JNJFOC-20090701175

PATIENT
  Sex: Male

DRUGS (6)
  1. TOPALGIC [Suspect]
     Indication: PAIN
     Route: 048
  2. ENOXAPARIN SODIUM [Suspect]
     Indication: THROMBOSIS PROPHYLAXIS
     Route: 058
  3. BENZYLPENICILLIN SODIUM [Suspect]
     Indication: ECZEMA INFECTED
     Route: 042
  4. AERIUS [Concomitant]
  5. COLCHICINE [Concomitant]
  6. ATARAX [Concomitant]

REACTIONS (1)
  - THROMBOCYTOPENIA [None]
